FAERS Safety Report 5633104-6 (Version None)
Quarter: 2008Q1

REPORT INFORMATION
  Report Type: 
  Country: None (occurrence: None)
  Receive Date: 20080221
  Receipt Date: 20080212
  Transmission Date: 20080703
  Serious: Yes (Hospitalization)
  Sender: FDA-Public Use
  Company Number: FR-AVENTIS-200810595FR

PATIENT
  Age: 74 Year
  Sex: Female

DRUGS (17)
  1. FLAGYL [Suspect]
     Indication: PROPHYLAXIS
     Route: 048
     Dates: start: 20071026, end: 20071031
  2. ROCEPHIN [Suspect]
     Route: 042
     Dates: start: 20071025, end: 20071109
  3. AMIKLIN                            /00391001/ [Suspect]
     Route: 042
     Dates: start: 20071029, end: 20071031
  4. CIFLOX                             /00697201/ [Suspect]
     Route: 048
     Dates: start: 20071025, end: 20071029
  5. BACTRIM [Suspect]
     Route: 048
     Dates: start: 20071031, end: 20071107
  6. TEMODAL [Suspect]
     Indication: GLIOBLASTOMA
     Dates: start: 20070201, end: 20071001
  7. TRIFLUCAN [Suspect]
     Route: 048
     Dates: start: 20071025, end: 20071107
  8. OXACILLIN [Concomitant]
     Route: 048
     Dates: start: 20071004, end: 20071024
  9. MEDROL [Concomitant]
     Route: 048
  10. NEURONTIN [Concomitant]
     Route: 048
     Dates: start: 20061101, end: 20071006
  11. NEURONTIN [Concomitant]
     Route: 048
     Dates: start: 20071007
  12. INSULINE [Concomitant]
     Route: 042
     Dates: start: 20071025, end: 20071102
  13. LEVEMIR [Concomitant]
     Route: 058
     Dates: start: 20071103
  14. MOPRAL [Concomitant]
     Route: 048
     Dates: start: 20071025
  15. INIPOMP                            /01263201/ [Concomitant]
     Route: 048
     Dates: start: 20071025
  16. ACETAMINOPHEN [Concomitant]
     Route: 048
     Dates: start: 20071026
  17. DIFFU K [Concomitant]
     Route: 048
     Dates: start: 20071027, end: 20071028

REACTIONS (1)
  - CHOLESTASIS [None]
